FAERS Safety Report 4585600-0 (Version None)
Quarter: 2005Q1

REPORT INFORMATION
  Report Type: 
  Country: None (occurrence: None)
  Receive Date: 20050214
  Receipt Date: 20041007
  Transmission Date: 20050727
  Serious: Yes (Hospitalization)
  Sender: FDA-Public Use
  Company Number: 05-093

PATIENT
  Age: 75 Year
  Sex: Male

DRUGS (7)
  1. DEXAMETHASONE [Suspect]
     Indication: MULTIPLE MYELOMA
     Dosage: 7 MG/KG/DAY, INTRAVENOUS
     Route: 042
     Dates: start: 20020208, end: 20020402
  2. GENASENSE [Suspect]
     Indication: MULTIPLE MYELOMA
     Dosage: 40 MG/DAY, ORAL
     Route: 048
     Dates: start: 20020211, end: 20020402
  3. AMLODIPINE [Concomitant]
  4. MULTI-VITAMINS [Concomitant]
  5. IPRATROPIUM INHALER [Concomitant]
  6. PROCHLORPERAZINE [Concomitant]
  7. MAGNESIUM [Concomitant]

REACTIONS (1)
  - BLOOD CREATININE INCREASED [None]
